FAERS Safety Report 5635766-6 (Version None)
Quarter: 2008Q1

REPORT INFORMATION
  Report Type: 
  Country: None (occurrence: None)
  Receive Date: 20080220
  Receipt Date: 20080205
  Transmission Date: 20080703
  Serious: Yes (Other)
  Sender: FDA-Public Use
  Company Number: 100#03#2008-00767

PATIENT
  Age: 24 Year

DRUGS (8)
  1. ERYTHROMYCIN [Suspect]
     Indication: LOWER RESPIRATORY TRACT INFECTION
     Dates: start: 20070417, end: 20071026
  2. HUMIRA [Suspect]
     Indication: PSORIATIC ARTHROPATHY
     Dosage: 40 MG; SUBCUTANEOUS, 40 MG, SUBCUTANEOUS
     Route: 058
     Dates: start: 20070417, end: 20071026
  3. HUMIRA [Suspect]
     Indication: PSORIATIC ARTHROPATHY
     Dosage: 40 MG; SUBCUTANEOUS, 40 MG, SUBCUTANEOUS
     Route: 058
     Dates: start: 20071001
  4. FOLIC ACID [Concomitant]
  5. METHOTREXATE [Concomitant]
  6. SERETIDE (FLUTICASONE PROPIONATE, SALMETEROL XINAFOATE) [Concomitant]
  7. SULFASALAZINE [Concomitant]
  8. VENTOLIN [Concomitant]

REACTIONS (5)
  - ABDOMINAL PAIN UPPER [None]
  - DRUG HYPERSENSITIVITY [None]
  - LOWER RESPIRATORY TRACT INFECTION [None]
  - MALAISE [None]
  - WHEEZING [None]
